FAERS Safety Report 7001442-0 (Version None)
Quarter: 2010Q3

REPORT INFORMATION
  Report Type: 
  Country: None (occurrence: None)
  Receive Date: 20100920
  Receipt Date: 20100512
  Transmission Date: 20110219
  Serious: No
  Sender: FDA-Public Use
  Company Number: US-ASTRAZENECA-2010SE21807

PATIENT
  Sex: Female

DRUGS (5)
  1. SEROQUEL [Suspect]
     Indication: BIPOLAR DISORDER
     Dosage: 100 MG IN AM AND 200 MG AT NIGHT
     Route: 048
     Dates: end: 20100501
  2. SEROQUEL [Suspect]
     Indication: DEPRESSION
     Dosage: 100 MG IN AM AND 200 MG AT NIGHT
     Route: 048
     Dates: end: 20100501
  3. SEROQUEL [Suspect]
     Route: 048
     Dates: start: 20100501
  4. SEROQUEL [Suspect]
     Route: 048
     Dates: start: 20100501
  5. PROZAC [Concomitant]

REACTIONS (4)
  - CHEST PAIN [None]
  - DYSPNOEA [None]
  - INSOMNIA [None]
  - THERAPEUTIC RESPONSE UNEXPECTED [None]
